FAERS Safety Report 15677639 (Version 1)
Quarter: 2018Q4

REPORT INFORMATION
  Report Type: Report from Study
  Country: US (occurrence: US)
  Receive Date: 20181130
  Receipt Date: 20181130
  Transmission Date: 20190205
  Serious: Yes (Hospitalization)
  Sender: FDA-Public Use
  Company Number: US-ACTELION-A-NJ2017-153492

PATIENT
  Age: 67 Year
  Sex: Female

DRUGS (7)
  1. VITAMIN D [Concomitant]
     Active Substance: CHOLECALCIFEROL
  2. AMLODIPINE [Concomitant]
     Active Substance: AMLODIPINE BESYLATE
  3. PREVACID [Concomitant]
     Active Substance: LANSOPRAZOLE
  4. OPSUMIT [Suspect]
     Active Substance: MACITENTAN
     Indication: PULMONARY ARTERIAL HYPERTENSION
     Dosage: 10 MG, QD
     Route: 048
     Dates: start: 20170301
  5. ADCIRCA [Concomitant]
     Active Substance: TADALAFIL
  6. FUROSEMIDE. [Concomitant]
     Active Substance: FUROSEMIDE
  7. MELOXICAM. [Concomitant]
     Active Substance: MELOXICAM

REACTIONS (9)
  - Dyspnoea [Not Recovered/Not Resolved]
  - Back pain [Unknown]
  - Arthritis [Unknown]
  - Oral candidiasis [Recovering/Resolving]
  - Fatigue [Not Recovered/Not Resolved]
  - Therapy non-responder [Not Recovered/Not Resolved]
  - Ligament sprain [Recovering/Resolving]
  - Hyponatraemia [Recovered/Resolved]
  - Fluid intake restriction [Recovered/Resolved]

NARRATIVE: CASE EVENT DATE: 201703
